FAERS Safety Report 20868570 (Version 1)
Quarter: 2022Q2

REPORT INFORMATION
  Report Type: Spontaneous
  Country: CN (occurrence: CN)
  Receive Date: 20220524
  Receipt Date: 20220524
  Transmission Date: 20220720
  Serious: Yes (Other)
  Sender: FDA-Public Use
  Company Number: CN-BAYER-2022A072294

PATIENT
  Age: 59 Year
  Sex: Male
  Weight: 62 kg

DRUGS (1)
  1. STIVARGA [Suspect]
     Active Substance: REGORAFENIB
     Indication: Hepatic cancer
     Dosage: 120 MG, QD
     Route: 048
     Dates: start: 20220314, end: 20220408

REACTIONS (6)
  - Hepatic cancer [None]
  - Dry skin [Recovering/Resolving]
  - Pain of skin [Recovering/Resolving]
  - Skin weeping [Recovering/Resolving]
  - Hyperkeratosis [Recovering/Resolving]
  - Off label use [None]

NARRATIVE: CASE EVENT DATE: 20220314
